FAERS Safety Report 13241913 (Version 1)
Quarter: 2017Q1

REPORT INFORMATION
  Report Type: Spontaneous
  Country: US (occurrence: US)
  Receive Date: 20170217
  Receipt Date: 20170217
  Transmission Date: 20170428
  Serious: No
  Sender: FDA-Public Use
  Company Number: US-PFIZER INC-2017071219

PATIENT
  Sex: Female

DRUGS (1)
  1. XELJANZ XR [Suspect]
     Active Substance: TOFACITINIB CITRATE
     Dosage: 11 MG, UNK

REACTIONS (34)
  - Fatigue [Unknown]
  - Dry skin [Unknown]
  - Nausea [Unknown]
  - Memory impairment [Unknown]
  - Impaired work ability [Unknown]
  - Arthralgia [Not Recovered/Not Resolved]
  - Joint stiffness [Not Recovered/Not Resolved]
  - Weight increased [Unknown]
  - Vomiting [Unknown]
  - Hair disorder [Unknown]
  - Dry eye [Unknown]
  - Disturbance in attention [Unknown]
  - Hypoaesthesia [Unknown]
  - Pain in extremity [Unknown]
  - Temperature intolerance [Unknown]
  - Tinnitus [Unknown]
  - Sinus disorder [Unknown]
  - Dizziness [Unknown]
  - Headache [Unknown]
  - Joint swelling [Not Recovered/Not Resolved]
  - Joint lock [Unknown]
  - Chills [Unknown]
  - Peripheral swelling [Unknown]
  - Constipation [Unknown]
  - Local swelling [Unknown]
  - Pyrexia [Unknown]
  - Chest pain [Unknown]
  - Photosensitivity reaction [Unknown]
  - Neck pain [Unknown]
  - Thirst [Unknown]
  - Paraesthesia [Unknown]
  - Dry mouth [Unknown]
  - Dysphonia [Unknown]
  - Rash [Unknown]
